FAERS Safety Report 8956097 (Version 1)
Quarter: 2012Q4

REPORT INFORMATION
  Report Type: 
  Country: NZ (occurrence: NZ)
  Receive Date: 20121210
  Receipt Date: 20121210
  Transmission Date: 20130627
  Serious: Yes (Death)
  Sender: FDA-Public Use
  Company Number: NZ-BAXTER-2012BAX025955

PATIENT
  Age: 66 Year
  Sex: Male

DRUGS (3)
  1. DIANEAL LOW CALCIUM WITH 2.5 PERCENT W/V GLUCOSE PERITONEAL DIALYSIS S [Suspect]
     Indication: PERITONEAL DIALYSIS
     Route: 033
     Dates: end: 20121202
  2. EXTRANEAL 7.5% W_V ICODEXTRIN DIALYSIS SOLUTION TWIN BAG WITH DRAINAGE [Suspect]
     Indication: PERITONEAL DIALYSIS
     Route: 033
     Dates: end: 20121202
  3. EXTRANEAL 7.5% W_V ICODEXTRIN DIALYSIS SOLUTION TWIN BAG WITH DRAINAGE [Suspect]
     Dates: end: 20121202

REACTIONS (1)
  - Death [Fatal]
